FAERS Safety Report 8845516 (Version 1)
Quarter: 2012Q4

REPORT INFORMATION
  Report Type: 
  Country: US (occurrence: US)
  Receive Date: 20121017
  Receipt Date: 20121017
  Transmission Date: 20130627
  Serious: No
  Sender: FDA-Public Use
  Company Number: US-PFIZER INC-2012257239

PATIENT
  Sex: Male

DRUGS (3)
  1. ADVIL [Suspect]
     Indication: HEADACHE
     Dosage: 200 mg, UNK
  2. ADVIL [Suspect]
     Indication: PAIN
  3. ADVIL [Suspect]
     Indication: BACK PAIN

REACTIONS (2)
  - Dependence [Unknown]
  - Pollakiuria [Unknown]
